FAERS Safety Report 4301105-6 (Version None)
Quarter: 2004Q1

REPORT INFORMATION
  Report Type: 
  Country: None (occurrence: None)
  Receive Date: 20040219
  Receipt Date: 20040204
  Transmission Date: 20041129
  Serious: Yes (Other)
  Sender: FDA-Public Use
  Company Number: 2004IM000248

PATIENT
  Age: 48 Year
  Sex: Female

DRUGS (6)
  1. ADVAFERON (A643_INTERFERON ALFACON-1) [Suspect]
     Indication: HEPATITIS CHRONIC ACTIVE
     Dosage: 18 MU;QD
     Dates: start: 20011218, end: 20020101
  2. AMLODIPINE BESYLATE [Concomitant]
  3. GASMOTIN (MOSAPRIDE CITRATE) [Concomitant]
  4. INSULIN [Concomitant]
  5. AMLODIPINE BESYLATE [Concomitant]
  6. EPALRESTAT [Concomitant]

REACTIONS (1)
  - NEPHROTIC SYNDROME [None]
